FAERS Safety Report 5541628-5 (Version None)
Quarter: 2007Q4

REPORT INFORMATION
  Report Type: 
  Country: None (occurrence: None)
  Receive Date: 20071210
  Receipt Date: 20071205
  Transmission Date: 20080405
  Serious: Yes (Life-Threatening)
  Sender: FDA-Public Use
  Company Number: JP-JNJFOC-20071201996

PATIENT
  Age: 60 Year
  Sex: Female

DRUGS (13)
  1. ITRIZOLE [Suspect]
     Indication: NAIL TINEA
     Dosage: PULSE THERAPY
     Route: 048
  2. OMEPRAZOLE [Concomitant]
     Route: 048
  3. BASEN [Concomitant]
     Route: 048
  4. LENDORMIN [Concomitant]
     Route: 048
  5. CALTAN [Concomitant]
     Route: 048
  6. NORVASC [Concomitant]
     Route: 048
  7. DOXAZOSIN MESYLATE [Concomitant]
     Route: 048
  8. LASIX [Concomitant]
     Route: 065
  9. PHOSBLOCK [Concomitant]
     Route: 048
  10. SIGMART [Concomitant]
     Route: 065
  11. DIOVAN [Concomitant]
     Route: 048
  12. ASPIRIN [Concomitant]
     Route: 048
  13. INSULIN [Concomitant]
     Route: 042

REACTIONS (1)
  - GASTROINTESTINAL HAEMORRHAGE [None]
